FAERS Safety Report 22913862 (Version 3)
Quarter: 2023Q4

REPORT INFORMATION
  Report Type: Spontaneous
  Country: US (occurrence: US)
  Receive Date: 20230906
  Receipt Date: 20231115
  Transmission Date: 20240109
  Serious: Yes (Death)
  Sender: FDA-Public Use
  Company Number: US-PFIZER INC-202300293392

PATIENT
  Age: 83 Year
  Sex: Male
  Weight: 117.93 kg

DRUGS (2)
  1. MEKTOVI [Suspect]
     Active Substance: BINIMETINIB
     Indication: Malignant melanoma
     Dosage: 30 MG, 2X/DAY (TWO TABLETS TWICE A DAY/30 MG PO Q 12 H)
     Route: 048
  2. BRAFTOVI [Suspect]
     Active Substance: ENCORAFENIB
     Indication: Malignant melanoma
     Dosage: 300 MG (TAKING 75 MILLIGRAMS, 4 CAPSULE/300 MG PO DAILY)
     Route: 048

REACTIONS (1)
  - Neoplasm progression [Fatal]
